FAERS Safety Report 25073915 (Version 5)
Quarter: 2025Q4

REPORT INFORMATION
  Report Type: Spontaneous
  Country: US (occurrence: US)
  Receive Date: 20250313
  Receipt Date: 20251029
  Transmission Date: 20260117
  Serious: Yes (Hospitalization)
  Sender: KARYOPHARM THERAPEUTICS
  Company Number: US-KARYOPHARM-2025KPT000254

PATIENT

DRUGS (14)
  1. XPOVIO [Suspect]
     Active Substance: SELINEXOR
     Indication: Plasma cell myeloma
     Dosage: 40 MG WEEKLY
     Route: 048
     Dates: start: 202412
  2. XPOVIO [Suspect]
     Active Substance: SELINEXOR
     Dosage: 20 MG WEEKLY
     Route: 048
  3. ACYCLOVIR [Concomitant]
     Active Substance: ACYCLOVIR
  4. AMLODIPINE [Concomitant]
     Active Substance: AMLODIPINE BESYLATE
  5. COREG [Concomitant]
     Active Substance: CARVEDILOL
  6. DEXAMETHASONE [Concomitant]
     Active Substance: DEXAMETHASONE
  7. GABAPENTIN [Concomitant]
     Active Substance: GABAPENTIN
  8. KYPROLIS [Concomitant]
     Active Substance: CARFILZOMIB
  9. LIPITOR [Concomitant]
     Active Substance: ATORVASTATIN CALCIUM
  10. LOPERAMIDE HYDROCHLORIDE [Concomitant]
     Active Substance: LOPERAMIDE HYDROCHLORIDE
  11. PROCHLORPERAZINE [Concomitant]
     Active Substance: PROCHLORPERAZINE
  12. XGEVA [Concomitant]
     Active Substance: DENOSUMAB
  13. ZETIA [Concomitant]
     Active Substance: EZETIMIBE
  14. ASPIRIN [Concomitant]
     Active Substance: ASPIRIN

REACTIONS (5)
  - Asthenia [Unknown]
  - Plasma cell myeloma [Unknown]
  - Diarrhoea [Recovering/Resolving]
  - Decreased appetite [Not Recovered/Not Resolved]
  - Fatigue [Recovering/Resolving]

NARRATIVE: CASE EVENT DATE: 20250101
